FAERS Safety Report 4455318-3 (Version None)
Quarter: 2004Q3

REPORT INFORMATION
  Report Type: 
  Country: None (occurrence: None)
  Receive Date: 20040825
  Receipt Date: 20040610
  Transmission Date: 20050211
  Serious: No
  Sender: FDA-Public Use
  Company Number: 207177

PATIENT
  Age: 55 Year
  Sex: Female
  Weight: 49.9 kg

DRUGS (1)
  1. RAPTIVA [Suspect]
     Indication: PSORIASIS
     Dosage: 50 MG,1/WEEK,SUBCUTANEOUS
     Route: 058
     Dates: start: 20040604, end: 20040606

REACTIONS (1)
  - URTICARIA [None]
